FAERS Safety Report 8507348-X (Version None)
Quarter: 2012Q3

REPORT INFORMATION
  Report Type: 
  Country: None (occurrence: None)
  Receive Date: 20120712
  Receipt Date: 20120711
  Transmission Date: 20120928
  Serious: Yes (Hospitalization)
  Sender: FDA-Public Use
  Company Number: JP-ABBOTT-10P-087-0625563-00

PATIENT
  Sex: Male
  Weight: 48.8 kg

DRUGS (10)
  1. LANSOPRAZOLE [Suspect]
     Indication: HELICOBACTER GASTRITIS
     Dosage: 2X
     Route: 048
     Dates: start: 20100128, end: 20100131
  2. LANSOPRAZOLE [Suspect]
     Indication: DUODENAL ULCER
  3. ALLEGRA [Concomitant]
     Indication: PRODUCT USED FOR UNKNOWN INDICATION
     Route: 048
  4. NORVASC [Concomitant]
     Indication: PRODUCT USED FOR UNKNOWN INDICATION
     Route: 048
  5. CLARITHROMYCIN [Suspect]
     Indication: DUODENAL ULCER
  6. CLARITHROMYCIN [Suspect]
     Indication: HELICOBACTER GASTRITIS
     Dosage: 200 MG 4T2X
     Route: 048
     Dates: start: 20100128, end: 20100131
  7. MAGMITT [Concomitant]
     Indication: CONSTIPATION
     Route: 048
     Dates: start: 20060915
  8. OLOPATADINE HCL [Concomitant]
     Indication: PRODUCT USED FOR UNKNOWN INDICATION
     Route: 048
  9. AMOXICILLIN TRIHYDRATE [Suspect]
     Indication: HELICOBACTER GASTRITIS
     Route: 048
     Dates: start: 20100128, end: 20100131
  10. AMOXICILLIN TRIHYDRATE [Suspect]
     Indication: DUODENAL ULCER

REACTIONS (1)
  - INAPPROPRIATE ANTIDIURETIC HORMONE SECRETION [None]
